FAERS Safety Report 8244931-3 (Version None)
Quarter: 2012Q1

REPORT INFORMATION
  Report Type: 
  Country: None (occurrence: None)
  Receive Date: 20120329
  Receipt Date: 20110921
  Transmission Date: 20120608
  Serious: No
  Sender: FDA-Public Use
  Company Number: US-MYLANLABS-2011S1019951

PATIENT
  Sex: Male

DRUGS (8)
  1. OXYCODONE HCL AND ACETAMINOPHEN [Concomitant]
  2. FENTANYL-100 [Suspect]
     Indication: PAIN
     Dosage: CHANGED Q72
     Route: 062
     Dates: start: 20100101
  3. KLONOPIN [Concomitant]
  4. CRESTOR [Concomitant]
  5. FENTANYL-100 [Suspect]
     Dosage: CHANGED Q48
     Route: 062
  6. PREDNISONE TAB [Concomitant]
  7. PERCOCET [Concomitant]
     Indication: BREAKTHROUGH PAIN
  8. VITAMIN B-12 [Concomitant]
     Route: 030

REACTIONS (2)
  - FEELING JITTERY [None]
  - DRUG INEFFECTIVE [None]
